FAERS Safety Report 6096287-2 (Version None)
Quarter: 2009Q1

REPORT INFORMATION
  Report Type: 
  Country: None (occurrence: None)
  Receive Date: 20090227
  Receipt Date: 20081117
  Transmission Date: 20090719
  Serious: Yes (Other)
  Sender: FDA-Public Use
  Company Number: A0754254A

PATIENT
  Age: 53 Year
  Sex: Female
  Weight: 57.3 kg

DRUGS (3)
  1. LAMICTAL [Suspect]
     Indication: BIPOLAR DISORDER
     Dosage: 12.5MG UNKNOWN
     Route: 048
     Dates: start: 20080930, end: 20081016
  2. LEXAPRO [Concomitant]
     Route: 048
  3. KLONOPIN [Concomitant]

REACTIONS (3)
  - DRUG ERUPTION [None]
  - HEPATIC ENZYME INCREASED [None]
  - RASH [None]
